FAERS Safety Report 19661929 (Version 1)
Quarter: 2021Q3

REPORT INFORMATION
  Report Type: Spontaneous
  Country: US (occurrence: US)
  Receive Date: 20210805
  Receipt Date: 20210805
  Transmission Date: 20211014
  Serious: Yes (Other)
  Sender: FDA-Public Use
  Company Number: US-ACCORD-186572

PATIENT
  Age: 50 Year
  Sex: Female
  Weight: 145.15 kg

DRUGS (22)
  1. PARACETAMOL [Concomitant]
     Active Substance: ACETAMINOPHEN
  2. ACETYLSALICYLIC ACID [Concomitant]
     Active Substance: ASPIRIN
  3. ATORVASTATIN [Concomitant]
     Active Substance: ATORVASTATIN
  4. FLUTICASONE PROPIONATE/SALMETEROL XINAFOATE [Concomitant]
     Active Substance: FLUTICASONE PROPIONATE\SALMETEROL XINAFOATE
  5. MEDROXYPROGESTERONE [Concomitant]
     Active Substance: MEDROXYPROGESTERONE
  6. IPRATROPIUM BROMIDE/SALBUTAMOL SULFATE [Concomitant]
     Active Substance: ALBUTEROL SULFATE\IPRATROPIUM BROMIDE
  7. BACLOFEN. [Concomitant]
     Active Substance: BACLOFEN
  8. ISOSORBIDE. [Concomitant]
     Active Substance: ISOSORBIDE
  9. METFORMIN [Concomitant]
     Active Substance: METFORMIN HYDROCHLORIDE
  10. DOCETAXEL ACCORD [Suspect]
     Active Substance: DOCETAXEL
     Indication: BREAST CANCER
     Dosage: EVERY THREE WEEKS
     Dates: start: 20150206, end: 20150408
  11. SALBUTAMOL [Concomitant]
     Active Substance: ALBUTEROL
  12. BUPRENORPHINE/NALOXONE [Concomitant]
     Active Substance: BUPRENORPHINE\NALOXONE
  13. CYTOXAN [Suspect]
     Active Substance: CYCLOPHOSPHAMIDE
     Indication: BREAST CANCER
     Dosage: EVERY THREE WEEKS,1435
     Dates: start: 20150206, end: 20150408
  14. CLONIDINE. [Concomitant]
     Active Substance: CLONIDINE
  15. DOCUSATE [Concomitant]
     Active Substance: DOCUSATE
  16. CALCIUM CARBONATE/COLECALCIFEROL [Concomitant]
     Active Substance: CALCIUM CARBONATE\CHOLECALCIFEROL
  17. DICLOFENAC [Concomitant]
     Active Substance: DICLOFENAC
  18. BENZATROPINE [Concomitant]
     Active Substance: BENZTROPINE
  19. FUROSEMIDE. [Concomitant]
     Active Substance: FUROSEMIDE
  20. GLIMEPIRIDE. [Concomitant]
     Active Substance: GLIMEPIRIDE
  21. LATUDA [Concomitant]
     Active Substance: LURASIDONE HYDROCHLORIDE
  22. METOPROLOL. [Concomitant]
     Active Substance: METOPROLOL

REACTIONS (1)
  - Alopecia [Not Recovered/Not Resolved]

NARRATIVE: CASE EVENT DATE: 201504
